FAERS Safety Report 12306806 (Version 2)
Quarter: 2016Q2

REPORT INFORMATION
  Report Type: Report from Study
  Country: JP (occurrence: JP)
  Receive Date: 20160426
  Receipt Date: 20160629
  Transmission Date: 20160815
  Serious: Yes (Other)
  Sender: FDA-Public Use
  Company Number: JP-EISAI MEDICAL RESEARCH-EC-2016-016329

PATIENT
  Age: 63 Year
  Sex: Female
  Weight: 54 kg

DRUGS (12)
  1. FENTOS [Suspect]
     Active Substance: FENTANYL
     Indication: CANCER PAIN
     Dosage: UNKNOWN
     Route: 062
  2. SENNOSIDE [Concomitant]
     Active Substance: SENNOSIDES
  3. GRANISETRON [Concomitant]
     Active Substance: GRANISETRON
  4. ZOMETA [Concomitant]
     Active Substance: ZOLEDRONIC ACID
  5. AZUNOL [Concomitant]
     Active Substance: SODIUM GUALENATE
  6. MICARDIS [Concomitant]
     Active Substance: TELMISARTAN
  7. MOHRUS [Concomitant]
     Active Substance: KETOPROFEN
  8. HALAVEN [Suspect]
     Active Substance: ERIBULIN MESYLATE
     Indication: BREAST CANCER RECURRENT
     Route: 041
     Dates: start: 20150911, end: 20160311
  9. MAGLAX [Concomitant]
     Active Substance: MAGNESIUM OXIDE
  10. DEXART [Concomitant]
     Active Substance: DEXAMETHASONE SODIUM PHOSPHATE
  11. GOODMIN [Concomitant]
     Active Substance: BROTIZOLAM
  12. OXINORM [Concomitant]
     Active Substance: OXYCODONE HYDROCHLORIDE

REACTIONS (1)
  - Neutropenia [Recovering/Resolving]

NARRATIVE: CASE EVENT DATE: 20160122
